FAERS Safety Report 7329749-8 (Version None)
Quarter: 2011Q1

REPORT INFORMATION
  Report Type: 
  Country: None (occurrence: None)
  Receive Date: 20110303
  Receipt Date: 20110124
  Transmission Date: 20110831
  Serious: Yes (Hospitalization, Other)
  Sender: FDA-Public Use
  Company Number: US-ASTRAZENECA-2011SE04120

PATIENT
  Age: 715 Month
  Sex: Female
  Weight: 49.9 kg

DRUGS (6)
  1. XANAX [Concomitant]
  2. PROZAC [Concomitant]
     Indication: DEPRESSION
     Route: 048
  3. ATIVAN [Concomitant]
  4. SEROQUEL XR [Suspect]
     Indication: MAJOR DEPRESSION
     Route: 048
     Dates: start: 20110117, end: 20110124
  5. ALTACE [Concomitant]
  6. NORVASC [Concomitant]

REACTIONS (2)
  - MALAISE [None]
  - HEPATIC ENZYME INCREASED [None]
